FAERS Safety Report 7757827-8 (Version None)
Quarter: 2011Q3

REPORT INFORMATION
  Report Type: 
  Country: None (occurrence: None)
  Receive Date: 20110918
  Receipt Date: 20110726
  Transmission Date: 20111222
  Serious: Yes (Death, Other)
  Sender: FDA-Public Use
  Company Number: PHHY2011DE55198

PATIENT
  Sex: Male
  Weight: 172 kg

DRUGS (11)
  1. METOPROLOL TARTRATE [Concomitant]
     Indication: HYPERTENSION
     Dosage: 47.5 MG PER DAY
     Route: 048
     Dates: start: 20080513
  2. ANTIDEPRESSANTS [Concomitant]
  3. PLATELET AGGREGATION INHIBITOR OF NSAID GROUP [Concomitant]
  4. DIOVAN HCT [Suspect]
     Indication: HYPERTENSION
     Dosage: UNK UKN, UNK
     Route: 048
     Dates: start: 20080513
  5. MOXONIDINE [Concomitant]
     Indication: HYPERTENSION
     Dosage: 0.2 MG PER DAY
     Route: 048
     Dates: start: 20080513
  6. RASILEZ [Suspect]
     Indication: HYPERTENSION
     Dosage: 300 MG PER DAY
     Route: 048
     Dates: start: 20090216
  7. THIENOPYRIDINE [Concomitant]
  8. STATINS [Concomitant]
  9. OTHER CHOLESTEROL LOWERING AGENTS [Concomitant]
  10. ACE INHIBITOR NOS [Concomitant]
  11. AMLODIPINE [Concomitant]
     Dosage: 1 DF, QD

REACTIONS (2)
  - MYOCARDIAL INFARCTION [None]
  - BLOOD PRESSURE INCREASED [None]
